FAERS Safety Report 26053172 (Version 1)
Quarter: 2025Q4

REPORT INFORMATION
  Report Type: Spontaneous
  Country: US (occurrence: None)
  Receive Date: 20251114
  Receipt Date: 20251114
  Transmission Date: 20260117
  Serious: No
  Sender: FDA-CTU
  Company Number: None

PATIENT
  Age: 59 Year
  Sex: Female
  Weight: 81 kg

DRUGS (8)
  1. QSYMIA [Suspect]
     Active Substance: PHENTERMINE HYDROCHLORIDE\TOPIRAMATE
     Indication: Weight control
     Dosage: 1 CAPSULE ORAL
     Route: 048
     Dates: start: 20240719, end: 20250830
  2. METFORMIN [Concomitant]
     Active Substance: METFORMIN HYDROCHLORIDE
  3. EZETIMIBE [Concomitant]
     Active Substance: EZETIMIBE
  4. VITAMIN D [Concomitant]
     Active Substance: VITAMIN D NOS
  5. PRALUENT [Concomitant]
     Active Substance: ALIROCUMAB
  6. ketoconazole topical [Concomitant]
  7. retinol topical [Concomitant]
  8. estradiol topical [Concomitant]

REACTIONS (9)
  - Dysgeusia [None]
  - Alopecia [None]
  - Irritability [None]
  - Verbal abuse [None]
  - Menopausal symptoms [None]
  - Mood altered [None]
  - Impulse-control disorder [None]
  - Aggression [None]
  - Therapy cessation [None]

NARRATIVE: CASE EVENT DATE: 20240731
